APPROVED DRUG PRODUCT: METOPROLOL SUCCINATE
Active Ingredient: METOPROLOL SUCCINATE
Strength: EQ 50MG TARTRATE
Dosage Form/Route: TABLET, EXTENDED RELEASE;ORAL
Application: A214110 | Product #001 | TE Code: AB
Applicant: ZHEJIANG JUTAI PHARMACEUTICAL CO LTD
Approved: Jul 26, 2024 | RLD: No | RS: No | Type: RX